FAERS Safety Report 15662814 (Version 2)
Quarter: 2019Q1

REPORT INFORMATION
  Report Type: Spontaneous
  Country: US (occurrence: US)
  Receive Date: 20181127
  Receipt Date: 20190122
  Transmission Date: 20190417
  Serious: Yes (Other)
  Sender: FDA-Public Use
  Company Number: US-SA-2018SA174964

PATIENT
  Age: 67 Year
  Sex: Female

DRUGS (24)
  1. CYTOXAN [Concomitant]
     Active Substance: CYCLOPHOSPHAMIDE
     Dosage: 1254 MG
     Route: 065
  2. CYTOXAN [Concomitant]
     Active Substance: CYCLOPHOSPHAMIDE
     Dosage: 1254 UNK
     Route: 065
  3. CYTOXAN [Concomitant]
     Active Substance: CYCLOPHOSPHAMIDE
     Dosage: 1254 UNK
     Route: 065
     Dates: start: 20080805
  4. ALOXI [Concomitant]
     Active Substance: PALONOSETRON HYDROCHLORIDE
     Dosage: 0.25 MG
     Route: 065
  5. ALOXI [Concomitant]
     Active Substance: PALONOSETRON HYDROCHLORIDE
     Dosage: 0.25 MG
     Route: 065
     Dates: start: 20080805
  6. DECADRON [DEXAMETHASONE] [Concomitant]
     Dosage: 10 MG
     Route: 065
  7. DECADRON [DEXAMETHASONE] [Concomitant]
     Dosage: 10 MG
     Route: 065
  8. TAXOTERE [Suspect]
     Active Substance: DOCETAXEL
     Indication: BREAST CANCER FEMALE
     Dosage: 156 MG, Q3W
     Route: 042
     Dates: start: 200805, end: 200805
  9. EMEND [Concomitant]
     Active Substance: APREPITANT
     Dosage: 115 UNK
     Route: 065
     Dates: start: 20080805
  10. ATIVAN [Concomitant]
     Active Substance: LORAZEPAM
     Dosage: 1 MG
     Route: 065
  11. ATIVAN [Concomitant]
     Active Substance: LORAZEPAM
     Dosage: 1 MG
     Route: 065
     Dates: start: 20080805
  12. ALOXI [Concomitant]
     Active Substance: PALONOSETRON HYDROCHLORIDE
     Dosage: 0.25 MG
     Route: 065
     Dates: start: 20080715
  13. DECADRON [DEXAMETHASONE] [Concomitant]
     Dosage: 10 MG
     Route: 065
     Dates: start: 20080715
  14. TAXOTERE [Suspect]
     Active Substance: DOCETAXEL
     Dosage: 156 MG, Q3W
     Route: 042
     Dates: start: 20080602, end: 20080602
  15. TAXOTERE [Suspect]
     Active Substance: DOCETAXEL
     Dosage: 156 MG, Q3W
     Route: 042
     Dates: start: 20080805, end: 20080805
  16. EMEND [Concomitant]
     Active Substance: APREPITANT
     Dosage: 115 MG
     Route: 065
  17. DECADRON [DEXAMETHASONE] [Concomitant]
     Dosage: 10 MG
     Route: 065
     Dates: start: 20080805
  18. ATIVAN [Concomitant]
     Active Substance: LORAZEPAM
     Dosage: 1 MG
     Route: 065
  19. CYTOXAN [Concomitant]
     Active Substance: CYCLOPHOSPHAMIDE
     Dosage: 1254 UNK
     Dates: start: 20080715
  20. ATIVAN [Concomitant]
     Active Substance: LORAZEPAM
     Dosage: 1 MG
     Dates: start: 20080715
  21. EMEND [Concomitant]
     Active Substance: APREPITANT
     Dosage: 115 UNK
     Route: 065
  22. EMEND [Concomitant]
     Active Substance: APREPITANT
     Dosage: 115 UNK
     Route: 065
     Dates: start: 20080715
  23. ALOXI [Concomitant]
     Active Substance: PALONOSETRON HYDROCHLORIDE
     Dosage: 0.25 MG
     Route: 065
  24. NEOSAR [Concomitant]
     Active Substance: CYCLOPHOSPHAMIDE
     Dosage: UNK
     Route: 065

REACTIONS (1)
  - Alopecia [Not Recovered/Not Resolved]

NARRATIVE: CASE EVENT DATE: 20090201
